FAERS Safety Report 4496311-4 (Version None)
Quarter: 2004Q4

REPORT INFORMATION
  Report Type: 
  Country: None (occurrence: None)
  Receive Date: 20041109
  Receipt Date: 20041102
  Transmission Date: 20050328
  Serious: Yes (Other)
  Sender: FDA-Public Use
  Company Number: PHBS2004JP14858

PATIENT

DRUGS (4)
  1. CYCLOSPORINE [Suspect]
     Dosage: 75 MG, BID
     Route: 065
  2. MEDROL [Concomitant]
  3. IMURAN [Concomitant]
  4. PERSANTIN-L [Concomitant]

REACTIONS (3)
  - BLOOD CREATINE PHOSPHOKINASE INCREASED [None]
  - MYALGIA [None]
  - RHABDOMYOLYSIS [None]
